FAERS Safety Report 9328602 (Version 1)
Quarter: 2013Q2

REPORT INFORMATION
  Report Type: Spontaneous
  Country: US (occurrence: US)
  Receive Date: 20130604
  Receipt Date: 20130604
  Transmission Date: 20140414
  Serious: No
  Sender: FDA-Public Use
  Company Number: US-SANOFI-AVENTIS-2012SA061908

PATIENT
  Age: 72 Year
  Sex: Male
  Weight: 117 kg

DRUGS (6)
  1. LANTUS [Suspect]
     Indication: TYPE 2 DIABETES MELLITUS
     Dosage: PRODUCT START DATE MENTIONED AS SIX YEARS AGO DOSE:25 UNIT(S)
     Route: 058
     Dates: start: 20090603
  2. METOPROLOL [Concomitant]
     Indication: CARDIAC DISORDER
     Dates: start: 2007
  3. TRICOR [Concomitant]
     Indication: BLOOD CHOLESTEROL
     Dates: start: 2004
  4. NIASPAN [Concomitant]
     Indication: BLOOD TRIGLYCERIDES
     Dates: start: 2004
  5. POTASSIUM [Concomitant]
     Indication: CARDIAC DISORDER
     Dates: start: 2007
  6. SPIRIVA [Concomitant]
     Indication: CHRONIC OBSTRUCTIVE PULMONARY DISEASE
     Dosage: 1 INHALATION
     Dates: start: 2010

REACTIONS (1)
  - Arthritis [Not Recovered/Not Resolved]
